FAERS Safety Report 6590844-2 (Version None)
Quarter: 2010Q1

REPORT INFORMATION
  Report Type: 
  Country: None (occurrence: None)
  Receive Date: 20100219
  Receipt Date: 20100209
  Transmission Date: 20100710
  Serious: Yes (Hospitalization)
  Sender: FDA-Public Use
  Company Number: A0829116A

PATIENT
  Age: 74 Year
  Sex: Female
  Weight: 90 kg

DRUGS (4)
  1. EXTINA [Suspect]
     Indication: SEBORRHOEIC DERMATITIS
     Route: 061
     Dates: start: 20090119
  2. LISINOPRIL [Concomitant]
     Indication: HYPERTENSION
     Dosage: 10MG PER DAY
     Route: 048
     Dates: start: 19990501
  3. ATENOLOL [Concomitant]
     Indication: HYPERTENSION
     Dosage: 25MG PER DAY
     Route: 048
     Dates: start: 19990501
  4. ASPIRIN [Concomitant]
     Dosage: 81MG PER DAY
     Route: 048
     Dates: start: 19990501

REACTIONS (1)
  - BILE DUCT STONE [None]
